FAERS Safety Report 16297837 (Version 1)
Quarter: 2019Q2

REPORT INFORMATION
  Report Type: Spontaneous
  Country: US (occurrence: US)
  Receive Date: 20190405
  Receipt Date: 20190405
  Transmission Date: 20190711
  Serious: No
  Sender: FDA-Public Use
  Company Number: None

PATIENT
  Age: 71 Year
  Sex: Male

DRUGS (2)
  1. REPATHA [Suspect]
     Active Substance: EVOLOCUMAB
     Indication: TYPE V HYPERLIPIDAEMIA
     Route: 058
     Dates: start: 201803
  2. PRAVASTATIN. [Concomitant]
     Active Substance: PRAVASTATIN

REACTIONS (2)
  - Muscle atrophy [None]
  - Weight decreased [None]

NARRATIVE: CASE EVENT DATE: 20190405
